FAERS Safety Report 7606721-1 (Version None)
Quarter: 2011Q3

REPORT INFORMATION
  Report Type: 
  Country: None (occurrence: None)
  Receive Date: 20110713
  Receipt Date: 20110706
  Transmission Date: 20111222
  Serious: Yes (Hospitalization)
  Sender: FDA-Public Use
  Company Number: JP-MERCK-1107USA00311

PATIENT
  Age: 51 Year
  Sex: Female

DRUGS (6)
  1. EMEND [Suspect]
     Route: 048
     Dates: start: 20110625, end: 20110627
  2. DEXAMETHASONE SODIUM PHOSPHATE [Concomitant]
     Route: 065
  3. ALOXI [Concomitant]
     Route: 065
  4. CISPLATIN [Concomitant]
     Route: 065
  5. TUBERCULIN [Suspect]
     Route: 058
  6. EMEND [Suspect]
     Indication: PROPHYLAXIS OF NAUSEA AND VOMITING
     Route: 048
     Dates: start: 20110624, end: 20110624

REACTIONS (1)
  - ANAPHYLACTIC SHOCK [None]
